FAERS Safety Report 6770613-0 (Version None)
Quarter: 2010Q2

REPORT INFORMATION
  Report Type: 
  Country: None (occurrence: None)
  Receive Date: 20100615
  Receipt Date: 20100604
  Transmission Date: 20101027
  Serious: Yes (Hospitalization)
  Sender: FDA-Public Use
  Company Number: FR-ELI_LILLY_AND_COMPANY-FR201006001352

PATIENT
  Sex: Male

DRUGS (6)
  1. ALIMTA [Suspect]
     Indication: LUNG NEOPLASM MALIGNANT
     Dosage: 500 MG/M2, UNK
     Route: 042
     Dates: end: 20100503
  2. EMEND [Concomitant]
     Indication: PREMEDICATION
     Dosage: UNK, UNK
     Route: 048
     Dates: start: 20100503
  3. ZOPHREN [Concomitant]
     Indication: PREMEDICATION
     Dosage: UNK, UNK
     Route: 042
     Dates: start: 20100503
  4. SOLU-MEDROL [Concomitant]
     Indication: PREMEDICATION
     Route: 042
     Dates: start: 20100503
  5. CISPLATIN [Concomitant]
  6. AVASTIN [Concomitant]
     Indication: LUNG NEOPLASM MALIGNANT

REACTIONS (1)
  - ANAPHYLACTIC SHOCK [None]
